FAERS Safety Report 8939839 (Version 2)
Quarter: 2013Q1

REPORT INFORMATION
  Report Type: Spontaneous
  Country: JP (occurrence: JP)
  Receive Date: 20121203
  Receipt Date: 20130122
  Transmission Date: 20140127
  Serious: Yes (Life-Threatening)
  Sender: FDA-Public Use
  Company Number: JP-ASTRAZENECA-2012SE89378

PATIENT
  Age: 28063 Day
  Sex: Male
  Weight: 61 kg

DRUGS (14)
  1. NEXIUM [Suspect]
     Indication: PROPHYLAXIS AGAINST GASTROINTESTINAL ULCER
     Route: 048
     Dates: start: 20121112, end: 20121115
  2. BAYASPIRIN [Concomitant]
     Indication: CEREBRAL INFARCTION
     Route: 048
     Dates: start: 20110209
  3. PLAVIX [Concomitant]
     Indication: CEREBRAL INFARCTION
     Route: 048
     Dates: start: 20110209
  4. DIART [Concomitant]
     Indication: RENAL FAILURE CHRONIC
     Route: 048
     Dates: start: 20120113
  5. KREMEZIN [Concomitant]
     Indication: RENAL FAILURE CHRONIC
     Route: 048
     Dates: start: 20110131
  6. MAGMITT [Concomitant]
     Indication: CONSTIPATION
     Route: 048
     Dates: start: 20070529
  7. ISOSORBIDE DINITRATE [Concomitant]
     Indication: MYOCARDIAL ISCHAEMIA
     Route: 062
     Dates: start: 20110214
  8. NESINA [Concomitant]
     Indication: DIABETES MELLITUS
     Route: 048
     Dates: start: 20120921
  9. LASIX [Concomitant]
     Indication: RENAL FAILURE CHRONIC
     Route: 048
     Dates: start: 20100528
  10. LASIX [Concomitant]
     Indication: RENAL FAILURE CHRONIC
     Route: 048
     Dates: start: 20120315
  11. ISOTONIC SODIUM CHLORIDE SOLUTION [Concomitant]
     Indication: CEREBRAL INFARCTION
     Route: 041
     Dates: start: 20121110, end: 20121121
  12. LOW-MOLECULAR DEXTRAN L [Concomitant]
     Indication: CEREBRAL INFARCTION
     Route: 041
     Dates: start: 20121112, end: 20121115
  13. SOLITA-T NO.1 [Concomitant]
     Indication: CEREBRAL INFARCTION
     Route: 041
     Dates: start: 20121110, end: 20121130
  14. NOVO HEPARIN [Concomitant]
     Indication: CEREBRAL INFARCTION
     Route: 041
     Dates: start: 20121112, end: 20121121

REACTIONS (1)
  - Renal tubular necrosis [Recovering/Resolving]
